FAERS Safety Report 10420461 (Version 1)
Quarter: 2014Q2

REPORT INFORMATION
  Report Type: Spontaneous
  Country: US (occurrence: None)
  Receive Date: 20140618
  Receipt Date: 20140618
  Transmission Date: 20141212
  Serious: Yes (Other)
  Sender: FDA-Public Use
  Company Number: 095898

PATIENT
  Sex: Male

DRUGS (3)
  1. LACOSAMIDE [Suspect]
     Dosage: UNSPECIFIED DOSE TO UNKNOWN
  2. RETIGABINE [Concomitant]
  3. DEPAKOTE [Concomitant]

REACTIONS (1)
  - Convulsion [None]
